FAERS Safety Report 10690006 (Version 4)
Quarter: 2015Q1

REPORT INFORMATION
  Report Type: Report from Study
  Country: DK (occurrence: DK)
  Receive Date: 20150105
  Receipt Date: 20150319
  Transmission Date: 20150720
  Serious: Yes (Hospitalization)
  Sender: FDA-Public Use
  Company Number: PHHO2014DK017305

PATIENT
  Age: 36 Year
  Sex: Male
  Weight: 110 kg

DRUGS (8)
  1. BLINDED NO TREATMENT RECEIVED [Suspect]
     Active Substance: UNSPECIFIED INGREDIENT
     Indication: EPILEPSY
     Dosage: CODE NOT BROKEN
     Route: 048
     Dates: start: 20140318
  2. PLACEBO [Suspect]
     Active Substance: UNSPECIFIED INGREDIENT
     Indication: EPILEPSY
     Dosage: CODE NOT BROKEN
     Route: 048
     Dates: start: 20140318
  3. EVEROLIMUS [Suspect]
     Active Substance: EVEROLIMUS
     Indication: EPILEPSY
     Dosage: 22 MG, QD
     Route: 048
     Dates: start: 20140318, end: 20141220
  4. CORODIL [Concomitant]
     Active Substance: DIPYRIDAMOLE
     Indication: HYPERTENSION
     Dosage: 10 MG,
     Route: 065
     Dates: start: 20141212
  5. APYDAN [Concomitant]
     Active Substance: OXCARBAZEPINE
     Indication: EPILEPSY
     Dosage: 1800 MG + 2100 MG
     Route: 065
     Dates: end: 20141220
  6. OXCARBAZEPINE. [Concomitant]
     Active Substance: OXCARBAZEPINE
     Indication: EPILEPSY
     Dosage: 1800MG + 2100 MG
     Route: 065
  7. AFINITOR [Suspect]
     Active Substance: EVEROLIMUS
     Indication: EPILEPSY
     Dosage: CODE NOT BROKEN
     Route: 048
     Dates: start: 20140318
  8. APYDAN [Concomitant]
     Active Substance: OXCARBAZEPINE
     Dosage: 1800 MG + 2100 MG
     Route: 065
     Dates: start: 20141222

REACTIONS (3)
  - Confusional state [Recovered/Resolved]
  - Seizure [Recovered/Resolved]
  - Mental disorder [Unknown]

NARRATIVE: CASE EVENT DATE: 20141222
